FAERS Safety Report 24133111 (Version 1)
Quarter: 2024Q3

REPORT INFORMATION
  Report Type: Spontaneous
  Country: DE (occurrence: DE)
  Receive Date: 20240724
  Receipt Date: 20240724
  Transmission Date: 20241016
  Serious: Yes (Other)
  Sender: AMGEN
  Company Number: DE-AMGEN-DEUSP2024073082

PATIENT
  Age: 82 Year
  Sex: Female

DRUGS (3)
  1. PROLIA [Suspect]
     Active Substance: DENOSUMAB
     Indication: Product used for unknown indication
     Dosage: 60 MILLIGRAM
     Route: 065
     Dates: start: 20240226, end: 2024
  2. Vigantol [Concomitant]
     Dosage: 1000
  3. CALCIUM [Concomitant]
     Active Substance: CALCIUM
     Dosage: 500
     Route: 065

REACTIONS (20)
  - Loss of consciousness [Unknown]
  - Sleep disorder due to a general medical condition [Unknown]
  - Impaired quality of life [Unknown]
  - Bladder pain [Not Recovered/Not Resolved]
  - Spinal pain [Unknown]
  - Pain in jaw [Unknown]
  - Hypoaesthesia [Unknown]
  - Blood pressure increased [Unknown]
  - Dysuria [Unknown]
  - Trismus [Unknown]
  - Jaw disorder [Unknown]
  - Micturition urgency [Unknown]
  - Haematuria [Unknown]
  - Pulse abnormal [Unknown]
  - Ear haemorrhage [Unknown]
  - Dental restoration failure [Unknown]
  - Dizziness [Unknown]
  - Arthralgia [Unknown]
  - Pain in extremity [Unknown]
  - Bone pain [Unknown]

NARRATIVE: CASE EVENT DATE: 20240101
